FAERS Safety Report 6859599-8 (Version None)
Quarter: 2010Q3

REPORT INFORMATION
  Report Type: 
  Country: None (occurrence: None)
  Receive Date: 20100719
  Receipt Date: 20080319
  Transmission Date: 20110219
  Serious: No
  Sender: FDA-Public Use
  Company Number: US-PFIZER INC-2008020236

PATIENT
  Sex: Female
  Weight: 68.9 kg

DRUGS (11)
  1. CHANTIX [Suspect]
     Indication: SMOKING CESSATION THERAPY
     Route: 048
     Dates: start: 20080301
  2. REBIF [Concomitant]
     Indication: MULTIPLE SCLEROSIS
     Dates: start: 20060101
  3. RISPERDAL [Concomitant]
     Route: 048
  4. LAMICTAL [Concomitant]
     Route: 048
  5. XANAX [Concomitant]
     Route: 048
  6. LIPITOR [Concomitant]
     Route: 048
  7. NEXIUM [Concomitant]
     Route: 048
  8. HYDROXYZINE [Concomitant]
     Route: 048
  9. REQUIP [Concomitant]
     Route: 048
  10. BUPROPION [Concomitant]
     Route: 048
  11. TRAZODONE HYDROCHLORIDE [Concomitant]
     Route: 048

REACTIONS (10)
  - ABDOMINAL DISCOMFORT [None]
  - CRYING [None]
  - DYSPNOEA [None]
  - INAPPROPRIATE SCHEDULE OF DRUG ADMINISTRATION [None]
  - NAUSEA [None]
  - NERVOUSNESS [None]
  - OROPHARYNGEAL PAIN [None]
  - TOBACCO USER [None]
  - TREMOR [None]
  - UNEVALUABLE EVENT [None]
